FAERS Safety Report 8390095-5 (Version None)
Quarter: 2012Q2

REPORT INFORMATION
  Report Type: 
  Country: None (occurrence: None)
  Receive Date: 20120529
  Receipt Date: 20120517
  Transmission Date: 20120825
  Serious: Yes (Other)
  Sender: FDA-Public Use
  Company Number: JP-VERTEX PHARMACEUTICALS INC.-AE-2012-007685

PATIENT
  Age: 63 Year
  Sex: Female

DRUGS (16)
  1. TELAVIC (TELAPREVIR) [Suspect]
     Indication: HEPATITIS C
     Route: 048
     Dates: start: 20120316, end: 20120403
  2. TELAVIC (TELAPREVIR) [Suspect]
     Route: 048
     Dates: start: 20120404, end: 20120406
  3. REBETOL [Concomitant]
     Indication: HEPATITIS C
     Route: 048
     Dates: start: 20120316, end: 20120319
  4. PEG-INTRON [Concomitant]
     Route: 051
     Dates: start: 20120418, end: 20120418
  5. TELAVIC (TELAPREVIR) [Suspect]
     Route: 048
     Dates: start: 20120407, end: 20120408
  6. PEG-INTRON [Concomitant]
     Route: 051
     Dates: start: 20120322, end: 20120322
  7. PEG-INTRON [Concomitant]
     Route: 051
     Dates: start: 20120328, end: 20120328
  8. PEG-INTRON [Concomitant]
     Indication: HEPATITIS C
     Route: 051
     Dates: start: 20120316, end: 20120316
  9. BIO-THREE [Concomitant]
     Route: 048
     Dates: start: 20120322
  10. REBETOL [Concomitant]
     Route: 048
     Dates: start: 20120320, end: 20120408
  11. REBETOL [Concomitant]
     Route: 048
     Dates: start: 20120409, end: 20120428
  12. PEG-INTRON [Concomitant]
     Route: 051
     Dates: start: 20120425, end: 20120425
  13. TELAVIC (TELAPREVIR) [Suspect]
     Route: 048
     Dates: start: 20120411, end: 20120428
  14. PEG-INTRON [Concomitant]
     Route: 051
     Dates: start: 20120411, end: 20120411
  15. TELAVIC (TELAPREVIR) [Suspect]
     Route: 048
     Dates: start: 20120409, end: 20120410
  16. PEG-INTRON [Concomitant]
     Route: 051
     Dates: start: 20120404, end: 20120404

REACTIONS (9)
  - PARONYCHIA [None]
  - DIARRHOEA [None]
  - PRURITUS [None]
  - DRY SKIN [None]
  - ERYTHEMA [None]
  - ANAEMIA [None]
  - WHITE BLOOD CELL COUNT DECREASED [None]
  - PLATELET COUNT DECREASED [None]
  - RASH [None]
